FAERS Safety Report 10014859 (Version 1)
Quarter: 2014Q1

REPORT INFORMATION
  Report Type: Spontaneous
  Country: US (occurrence: US)
  Receive Date: 20140317
  Receipt Date: 20140317
  Transmission Date: 20141002
  Serious: Yes (Other)
  Sender: FDA-Public Use
  Company Number: US-GILEAD-2014-0096708

PATIENT
  Age: 66 Year
  Sex: Female

DRUGS (2)
  1. LETAIRIS [Suspect]
     Indication: PRODUCT USED FOR UNKNOWN INDICATION
     Dosage: 5 MG, QD
     Route: 065
     Dates: start: 20140221
  2. ESTRADIOL [Concomitant]

REACTIONS (6)
  - Atrial fibrillation [Not Recovered/Not Resolved]
  - Stress [Not Recovered/Not Resolved]
  - Palpitations [Unknown]
  - Dizziness [Unknown]
  - Hot flush [Not Recovered/Not Resolved]
  - Flushing [Unknown]
